FAERS Safety Report 4981296-4 (Version None)
Quarter: 2006Q2

REPORT INFORMATION
  Report Type: 
  Country: None (occurrence: None)
  Receive Date: 20060424
  Receipt Date: 20060220
  Transmission Date: 20061013
  Serious: Yes (Hospitalization)
  Sender: FDA-Public Use
  Company Number: US-MERCK-0602USA05475

PATIENT
  Age: 47 Year
  Sex: Male
  Weight: 84 kg

DRUGS (12)
  1. VIOXX [Suspect]
     Indication: BACK PAIN
     Route: 048
     Dates: end: 20030505
  2. VIOXX [Suspect]
     Route: 048
     Dates: start: 20030505, end: 20040901
  3. VIOXX [Suspect]
     Route: 048
     Dates: end: 20030505
  4. VIOXX [Suspect]
     Route: 048
     Dates: start: 19980101, end: 20030505
  5. VIOXX [Suspect]
     Indication: NECK PAIN
     Route: 048
     Dates: end: 20030505
  6. VIOXX [Suspect]
     Route: 048
     Dates: start: 20030505, end: 20040901
  7. VIOXX [Suspect]
     Route: 048
     Dates: end: 20030505
  8. VIOXX [Suspect]
     Route: 048
     Dates: start: 19980101, end: 20030505
  9. ZONEGRAN [Concomitant]
     Route: 065
  10. SOMA [Concomitant]
     Route: 065
  11. HYDROCODONE HYDROCHLORIDE [Concomitant]
     Indication: PAIN
     Route: 048
  12. WELLBUTRIN SR [Concomitant]
     Route: 048

REACTIONS (2)
  - BACK PAIN [None]
  - CEREBROVASCULAR ACCIDENT [None]
